FAERS Safety Report 10720880 (Version 7)
Quarter: 2017Q1

REPORT INFORMATION
  Report Type: Spontaneous
  Country: US (occurrence: US)
  Receive Date: 20150119
  Receipt Date: 20170215
  Transmission Date: 20170428
  Serious: No
  Sender: FDA-Public Use
  Company Number: US-PFIZER INC-2015018920

PATIENT
  Age: 63 Year
  Sex: Male

DRUGS (5)
  1. SUTENT [Suspect]
     Active Substance: SUNITINIB MALATE
     Indication: METASTATIC RENAL CELL CARCINOMA
     Dosage: 50 MG, CYCLIC (DAILY FOR 28 DAYS ON AND 14 DAYS OFF)
     Dates: start: 20150101
  2. SUTENT [Suspect]
     Active Substance: SUNITINIB MALATE
     Dosage: 50 MG, CYCLIC (2 WEEKS ON, 1 WEEK OFF; 2 WEEKS ON, 1 WEEK OFF)
     Dates: start: 20150730
  3. SUTENT [Suspect]
     Active Substance: SUNITINIB MALATE
     Dosage: 50 MG, CYCLIC (28 DAY ON, 14 DAYS OFF)
     Dates: start: 20150101, end: 20150730
  4. LEVOTHYROXINE. [Concomitant]
     Active Substance: LEVOTHYROXINE
     Indication: TEMPERATURE INTOLERANCE
     Dosage: 75 UG, UNK (75 MCG)
     Dates: start: 20160420
  5. LEVOTHYROXINE. [Concomitant]
     Active Substance: LEVOTHYROXINE
     Indication: THYROID DISORDER
     Dosage: 50 UG, UNK (50 MCG)
     Dates: start: 20150821

REACTIONS (10)
  - Diarrhoea [Not Recovered/Not Resolved]
  - Asthenia [Unknown]
  - Blood pressure increased [Not Recovered/Not Resolved]
  - Neoplasm progression [Recovered/Resolved]
  - Hyperkeratosis [Not Recovered/Not Resolved]
  - Blood pressure fluctuation [Unknown]
  - Temperature intolerance [Unknown]
  - Dyspepsia [Not Recovered/Not Resolved]
  - Yellow skin [Not Recovered/Not Resolved]
  - Fatigue [Unknown]

NARRATIVE: CASE EVENT DATE: 20150119
